FAERS Safety Report 4525248-7 (Version None)
Quarter: 2004Q4

REPORT INFORMATION
  Report Type: 
  Country: None (occurrence: None)
  Receive Date: 20041117
  Receipt Date: 20040301
  Transmission Date: 20050328
  Serious: Yes (Other)
  Sender: FDA-Public Use
  Company Number: 2004S1000608

PATIENT
  Age: 22 Year
  Sex: Male

DRUGS (7)
  1. CLOZAPINE [Suspect]
     Indication: BIPOLAR DISORDER
     Dosage: 400MG BID, THEN UNK, ORAL
     Route: 048
     Dates: start: 20030405
  2. CLOZAPINE [Suspect]
     Indication: SCHIZOAFFECTIVE DISORDER
     Dosage: 400MG BID, THEN UNK, ORAL
     Route: 048
     Dates: start: 20030405
  3. TOLTERODINE [Concomitant]
  4. BENZTROPINE MESYLATE [Concomitant]
  5. FLUOXETINE [Concomitant]
  6. LANSOPRAZOLE [Concomitant]
  7. HALOPERIDOL [Concomitant]

REACTIONS (1)
  - CONVULSION [None]
